FAERS Safety Report 8601718-7 (Version None)
Quarter: 2012Q3

REPORT INFORMATION
  Report Type: 
  Country: None (occurrence: None)
  Receive Date: 20120817
  Receipt Date: 20120203
  Transmission Date: 20120928
  Serious: No
  Sender: FDA-Public Use
  Company Number: US-BRISTOL-MYERS SQUIBB COMPANY-16383960

PATIENT
  Age: 46 Year
  Sex: Female
  Weight: 84 kg

DRUGS (3)
  1. SPRYCEL [Suspect]
     Indication: LEUKAEMIA
     Dosage: JAN 2012 :REINITIATED
     Dates: start: 20110301
  2. METFORMIN HYDROCHLORIDE [Concomitant]
  3. GLIPIZIDE [Concomitant]

REACTIONS (4)
  - TREMOR [None]
  - HEADACHE [None]
  - CONFUSIONAL STATE [None]
  - FATIGUE [None]
